FAERS Safety Report 4777321-6 (Version None)
Quarter: 2005Q3

REPORT INFORMATION
  Report Type: 
  Country: None (occurrence: None)
  Receive Date: 20050915
  Receipt Date: 20050902
  Transmission Date: 20060218
  Serious: Yes (Hospitalization)
  Sender: FDA-Public Use
  Company Number: CHWYE949602SEP05

PATIENT
  Age: 52 Year
  Sex: Male

DRUGS (4)
  1. TAZOBAC [Suspect]
     Indication: OSTEOMYELITIS
     Dosage: 4.5 G 3X PER 1 DAY, INTRAVENOUS
     Route: 042
     Dates: start: 20050512, end: 20050525
  2. DAFALGAN               (PARACETAMOL, 0 ) [Suspect]
     Dosage: 1000 MG 4X PER
     Route: 048
     Dates: start: 20050213, end: 20050526
  3. PANTOZOL            (PANTOPRAZOLE) [Suspect]
     Dosage: 40 MG 1X PER 1 DAY, INTRAVENOUS
     Route: 042
     Dates: start: 20050514, end: 20050518
  4. HEPARIN [Concomitant]

REACTIONS (12)
  - ALANINE AMINOTRANSFERASE INCREASED [None]
  - ASPARTATE AMINOTRANSFERASE INCREASED [None]
  - BLOOD ALKALINE PHOSPHATASE INCREASED [None]
  - CHILLS [None]
  - DIARRHOEA [None]
  - EOSINOPHILIA [None]
  - GAMMA-GLUTAMYLTRANSFERASE INCREASED [None]
  - GASTROINTESTINAL DISORDER [None]
  - GENERAL PHYSICAL HEALTH DETERIORATION [None]
  - HAEMATOCHEZIA [None]
  - HEPATOCELLULAR DAMAGE [None]
  - PYREXIA [None]
